FAERS Safety Report 8518807-8 (Version None)
Quarter: 2012Q3

REPORT INFORMATION
  Report Type: 
  Country: None (occurrence: None)
  Receive Date: 20120718
  Receipt Date: 20120713
  Transmission Date: 20120928
  Serious: Yes (Other)
  Sender: FDA-Public Use
  Company Number: PHHY2012CA005407

PATIENT
  Sex: Female

DRUGS (4)
  1. SANDOSTATIN LAR [Suspect]
     Dosage: 30 MG, EVERY THREE WEEKS
     Route: 030
  2. SANDOSTATIN LAR [Suspect]
     Indication: CARCINOID TUMOUR OF THE GASTROINTESTINAL TRACT
     Dosage: 30 MG, ONCE A MONTH
     Route: 030
     Dates: start: 20111122
  3. SANDOSTATIN LAR [Suspect]
     Dosage: 40 MG, TIW (EVERY 3 WEEKS)
     Route: 030
     Dates: start: 20111122
  4. ANTICOAGULANTS [Concomitant]

REACTIONS (4)
  - INJECTION SITE HAEMORRHAGE [None]
  - INTERNATIONAL NORMALISED RATIO INCREASED [None]
  - EMOTIONAL DISTRESS [None]
  - FRUSTRATION [None]
